FAERS Safety Report 4314030-1 (Version None)
Quarter: 2004Q1

REPORT INFORMATION
  Report Type: 
  Country: None (occurrence: None)
  Receive Date: 20040305
  Receipt Date: 20040219
  Transmission Date: 20041129
  Serious: Yes (Other)
  Sender: FDA-Public Use
  Company Number: S03-TUR-04111-01

PATIENT
  Sex: Female

DRUGS (2)
  1. ESCITALOPRAM OXALATE [Suspect]
     Indication: MAJOR DEPRESSION
     Dosage: 10 MG QD PO
     Route: 048
     Dates: start: 20030701, end: 20030924
  2. LIOTHYRONINE SODIUM [Concomitant]

REACTIONS (2)
  - APHASIA [None]
  - LACTIC ACIDOSIS [None]
